FAERS Safety Report 7288421-3 (Version None)
Quarter: 2011Q1

REPORT INFORMATION
  Report Type: 
  Country: None (occurrence: None)
  Receive Date: 20110211
  Receipt Date: 20110207
  Transmission Date: 20110831
  Serious: Yes (Death, Life-Threatening, Disabling)
  Sender: FDA-Public Use
  Company Number: A0912257A

PATIENT
  Age: 76 Year
  Sex: Male

DRUGS (7)
  1. VENTOLIN [Suspect]
     Dosage: 1PUFF AS REQUIRED
     Route: 055
     Dates: start: 20100303, end: 20101217
  2. SPIRIVA [Concomitant]
  3. PROTONIX [Concomitant]
  4. ADVAIR [Suspect]
     Dosage: 1PUFF TWICE PER DAY
     Route: 055
     Dates: start: 20100303, end: 20101217
  5. LIPITOR [Concomitant]
  6. PLAVIX [Concomitant]
  7. TOPROL-XL [Concomitant]

REACTIONS (1)
  - DEATH [None]
